FAERS Safety Report 4332706-7 (Version None)
Quarter: 2004Q1

REPORT INFORMATION
  Report Type: 
  Country: None (occurrence: None)
  Receive Date: 20040330
  Receipt Date: 20040318
  Transmission Date: 20041129
  Serious: Yes (Other)
  Sender: FDA-Public Use
  Company Number: US-JNJFOC-20040304678

PATIENT
  Age: 25 Year
  Sex: Male
  Weight: 63.5036 kg

DRUGS (3)
  1. REMICADE [Suspect]
     Indication: CROHN'S DISEASE
     Dosage: 300 MG, INTRAVENOUS (SEE IMAGE)
     Route: 042
     Dates: start: 20040304
  2. REMICADE [Suspect]
     Indication: CROHN'S DISEASE
     Dosage: 300 MG, INTRAVENOUS (SEE IMAGE)
     Route: 042
     Dates: start: 20040318
  3. IMURAN [Concomitant]

REACTIONS (6)
  - CHILLS [None]
  - CYANOSIS [None]
  - DIZZINESS [None]
  - DRY MOUTH [None]
  - INFUSION RELATED REACTION [None]
  - SWOLLEN TONGUE [None]
